FAERS Safety Report 15454358 (Version 2)
Quarter: 2018Q4

REPORT INFORMATION
  Report Type: Report from Study
  Country: None (occurrence: US)
  Receive Date: 20181002
  Receipt Date: 20181005
  Transmission Date: 20190204
  Serious: Yes (Other)
  Sender: FDA-Public Use
  Company Number: US-ABBVIE-18S-163-2504814-00

PATIENT
  Age: 60 Year
  Sex: Male

DRUGS (1)
  1. ANDROGEL [Suspect]
     Active Substance: TESTOSTERONE
     Indication: HORMONE REPLACEMENT THERAPY
     Route: 061

REACTIONS (2)
  - Spinal operation [Unknown]
  - Rotator cuff syndrome [Recovered/Resolved]

NARRATIVE: CASE EVENT DATE: 201808
